FAERS Safety Report 7633669-9 (Version None)
Quarter: 2011Q3

REPORT INFORMATION
  Report Type: 
  Country: None (occurrence: None)
  Receive Date: 20110725
  Receipt Date: 20110715
  Transmission Date: 20111222
  Serious: Yes (Life-Threatening, Hospitalization)
  Sender: FDA-Public Use
  Company Number: JP-GLAXOSMITHKLINE-B0729384A

PATIENT
  Sex: Female
  Weight: 41 kg

DRUGS (4)
  1. ENALAPRIL MALEATE [Concomitant]
     Indication: HYPERTENSION
     Dosage: 4IUAX PER DAY
     Route: 048
     Dates: end: 20110623
  2. VALTREX [Suspect]
     Indication: HERPES ZOSTER
     Dosage: 3000MG PER DAY
     Route: 048
     Dates: start: 20110621, end: 20110623
  3. REBAMIPIDE [Concomitant]
     Indication: HERPES ZOSTER
     Dosage: 9IUAX PER DAY
     Route: 048
     Dates: end: 20110623
  4. KENTAN [Concomitant]
     Indication: HERPES ZOSTER
     Dosage: 9IUAX PER DAY
     Route: 048
     Dates: end: 20110623

REACTIONS (7)
  - RENAL FAILURE ACUTE [None]
  - ABNORMAL BEHAVIOUR [None]
  - OLIGURIA [None]
  - ENCEPHALOPATHY [None]
  - BLOOD CREATININE INCREASED [None]
  - LOSS OF CONSCIOUSNESS [None]
  - ALTERED STATE OF CONSCIOUSNESS [None]
